FAERS Safety Report 6825257-9 (Version None)
Quarter: 2010Q3

REPORT INFORMATION
  Report Type: 
  Country: None (occurrence: None)
  Receive Date: 20100708
  Receipt Date: 20061218
  Transmission Date: 20110219
  Serious: No
  Sender: FDA-Public Use
  Company Number: US-PFIZER INC-2006156126

PATIENT
  Sex: Female
  Weight: 61.23 kg

DRUGS (9)
  1. CHANTIX [Suspect]
     Dates: start: 20061215
  2. METFORMIN HCL [Concomitant]
     Indication: BLOOD GLUCOSE
  3. BENAZEPRIL HYDROCHLORIDE [Concomitant]
  4. NIASPAN [Concomitant]
     Indication: BLOOD CHOLESTEROL
  5. ANASTROZOLE [Concomitant]
     Indication: MASTECTOMY
  6. ACIPHEX [Concomitant]
  7. HYOSCINE METHOBROMIDE [Concomitant]
     Indication: PAIN IN EXTREMITY
  8. VICODIN [Concomitant]
     Indication: PAIN IN EXTREMITY
  9. XANAX [Concomitant]

REACTIONS (1)
  - CONSTIPATION [None]
